FAERS Safety Report 21896847 (Version 1)
Quarter: 2023Q1

REPORT INFORMATION
  Report Type: Spontaneous
  Country: CA (occurrence: CA)
  Receive Date: 20230123
  Receipt Date: 20230123
  Transmission Date: 20230418
  Serious: Yes (Other)
  Sender: FDA-Public Use
  Company Number: CA-BAYER-2023P003756

PATIENT

DRUGS (1)
  1. EYLEA [Suspect]
     Active Substance: AFLIBERCEPT
     Indication: Product used for unknown indication
     Dosage: UNK UNK, Q8WK, SOLUTION FOR INJECTION
     Dates: start: 202106

REACTIONS (3)
  - Subretinal fluid [Unknown]
  - Visual acuity reduced [Unknown]
  - Drug ineffective [Unknown]
